FAERS Safety Report 10679122 (Version 1)
Quarter: 2014Q4

REPORT INFORMATION
  Report Type: Spontaneous
  Country: US (occurrence: US)
  Receive Date: 20141229
  Receipt Date: 20141229
  Transmission Date: 20150529
  Serious: No
  Sender: FDA-Public Use
  Company Number: US-PFIZER INC-2014350561

PATIENT
  Age: 68 Year
  Sex: Male

DRUGS (1)
  1. SUTENT [Suspect]
     Active Substance: SUNITINIB MALATE
     Indication: PANCREATIC CARCINOMA
     Dosage: 50 MG, DAILY

REACTIONS (5)
  - Pyrexia [Unknown]
  - Pain [Unknown]
  - Diarrhoea [Unknown]
  - Fatigue [Unknown]
  - Product use issue [Unknown]
